FAERS Safety Report 11045799 (Version 1)
Quarter: 2015Q2

REPORT INFORMATION
  Report Type: Spontaneous
  Country: US (occurrence: US)
  Receive Date: 20150417
  Receipt Date: 20150417
  Transmission Date: 20150821
  Serious: No
  Sender: FDA-Public Use
  Company Number: US-009507513-1504USA017036

PATIENT
  Sex: Female
  Weight: 62.59 kg

DRUGS (1)
  1. NEXPLANON [Suspect]
     Active Substance: ETONOGESTREL
     Indication: MENSTRUAL CYCLE MANAGEMENT
     Dosage: ONE ROD FOR THREE YEARS
     Route: 059
     Dates: start: 201502, end: 20150415

REACTIONS (5)
  - Cough [Unknown]
  - Dry mouth [Unknown]
  - Migraine [Unknown]
  - Abdominal pain upper [Unknown]
  - Drug administration error [Unknown]

NARRATIVE: CASE EVENT DATE: 201502
